FAERS Safety Report 21227054 (Version 1)
Quarter: 2022Q3

REPORT INFORMATION
  Report Type: Spontaneous
  Country: US (occurrence: None)
  Receive Date: 20220817
  Receipt Date: 20220817
  Transmission Date: 20221026
  Serious: No
  Sender: FDA-Public Use
  Company Number: None

PATIENT
  Age: 81 Year
  Sex: Female
  Weight: 79.83 kg

DRUGS (23)
  1. LENALIDOMIDE [Suspect]
     Active Substance: LENALIDOMIDE
     Indication: Plasma cell myeloma
     Dosage: OTHER FREQUENCY : 21D ON 7D OFF;?
     Route: 048
  2. ASPIRIN [Concomitant]
     Active Substance: ASPIRIN
  3. ALPRAZOLAM [Concomitant]
     Active Substance: ALPRAZOLAM
  4. BENADRYL [Concomitant]
     Active Substance: DIPHENHYDRAMINE HYDROCHLORIDE
  5. CALCIUM CARBONATE [Concomitant]
     Active Substance: CALCIUM CARBONATE
  6. CARVEDILOL [Concomitant]
     Active Substance: CARVEDILOL
  7. VITAMINS [Concomitant]
     Active Substance: VITAMINS
  8. CHLORHEXIDINE [Concomitant]
     Active Substance: CHLORHEXIDINE
  9. CLARITIN [Concomitant]
     Active Substance: LORATADINE
  10. DENTA [Concomitant]
  11. FLUTICASONE [Concomitant]
     Active Substance: FLUTICASONE
  12. IPRATROPIUM [Concomitant]
     Active Substance: IPRATROPIUM
  13. LASIX [Concomitant]
     Active Substance: FUROSEMIDE
  14. LEVOTHYROXINE [Concomitant]
     Active Substance: LEVOTHYROXINE
  15. LISINOPRIL [Concomitant]
     Active Substance: LISINOPRIL
  16. MELOXICAM [Concomitant]
     Active Substance: MELOXICAM
  17. OMEPRAZOLE [Concomitant]
     Active Substance: OMEPRAZOLE
  18. PEPSIN [Concomitant]
     Active Substance: PEPSIN
  19. POTASSIUM CHLORIDE [Concomitant]
     Active Substance: POTASSIUM CHLORIDE
  20. PRAVASTATIN [Concomitant]
     Active Substance: PRAVASTATIN
  21. MINERALS\VITAMINS [Concomitant]
     Active Substance: MINERALS\VITAMINS
  22. TRAMADOL [Concomitant]
     Active Substance: TRAMADOL
  23. VALACYCLOVIR [Concomitant]
     Active Substance: VALACYCLOVIR HYDROCHLORIDE

REACTIONS (1)
  - Neutrophil count decreased [None]
